APPROVED DRUG PRODUCT: OTREXUP
Active Ingredient: METHOTREXATE
Strength: 10MG/0.4ML (10MG/0.4ML)
Dosage Form/Route: SOLUTION;SUBCUTANEOUS
Application: N204824 | Product #001
Applicant: ASSERTIO SPECIALTY PHARMACEUTICALS LLC
Approved: Oct 11, 2013 | RLD: Yes | RS: No | Type: DISCN

PATENTS:
Patent 8945063 | Expires: Mar 19, 2030
Patent 8579865 | Expires: Mar 19, 2030
Patent 8480631 | Expires: Mar 19, 2030
Patent 9421333 | Expires: Mar 19, 2030
Patent 8562564 | Expires: Jan 24, 2026
Patent 10709844 | Expires: Mar 10, 2029
Patent 9629959 | Expires: Jan 24, 2026
Patent 11446441 | Expires: Jan 24, 2026
Patent 9533102 | Expires: Jan 24, 2026
Patent 11497753 | Expires: Mar 19, 2030
Patent 11684723 | Expires: Mar 10, 2029
Patent 8021335 | Expires: Oct 4, 2026
Patent 9867949 | Expires: Mar 10, 2029
Patent 12357642 | Expires: Mar 19, 2030
Patent 8814834 | Expires: May 27, 2031